FAERS Safety Report 17615900 (Version 1)
Quarter: 2020Q2

REPORT INFORMATION
  Report Type: Spontaneous
  Country: US (occurrence: US)
  Receive Date: 20200402
  Receipt Date: 20200402
  Transmission Date: 20200713
  Serious: No
  Sender: FDA-Public Use
  Company Number: US-UCBSA-2019039903

PATIENT
  Age: 77 Year
  Sex: Female
  Weight: 99.79 kg

DRUGS (3)
  1. NEUPRO [Suspect]
     Active Substance: ROTIGOTINE
     Indication: RESTLESS LEGS SYNDROME
  2. NEUPRO [Suspect]
     Active Substance: ROTIGOTINE
     Indication: MOVEMENT DISORDER
     Dosage: 8 MG
     Dates: start: 2016
  3. SULFA [SULFACETAMIDE SODIUM] [Concomitant]
     Active Substance: SULFACETAMIDE SODIUM
     Indication: PRODUCT USED FOR UNKNOWN INDICATION
     Dosage: UNK

REACTIONS (3)
  - Application site erythema [Not Recovered/Not Resolved]
  - Intentional product misuse [Unknown]
  - Product adhesion issue [Unknown]

NARRATIVE: CASE EVENT DATE: 201903
